FAERS Safety Report 5859658-2 (Version None)
Quarter: 2008Q3

REPORT INFORMATION
  Report Type: 
  Country: None (occurrence: None)
  Receive Date: 20080827
  Receipt Date: 20080819
  Transmission Date: 20090109
  Serious: Yes (Hospitalization)
  Sender: FDA-Public Use
  Company Number: JP-JNJFOC-20080201014

PATIENT
  Sex: Female

DRUGS (6)
  1. CRAVIT [Suspect]
     Indication: URINARY TRACT INFECTION
     Route: 048
  2. ADOAIR [Suspect]
     Indication: DRUG USE FOR UNKNOWN INDICATION
     Route: 055
  3. BOUFUUTSUUSHOUSAN [Suspect]
     Indication: DRUG USE FOR UNKNOWN INDICATION
     Route: 065
  4. URSO 250 [Concomitant]
     Route: 065
  5. APLACE [Concomitant]
     Route: 065
  6. ALPAROL [Concomitant]
     Route: 065

REACTIONS (1)
  - PNEUMONIA [None]
